FAERS Safety Report 5204222-1 (Version None)
Quarter: 2007Q1

REPORT INFORMATION
  Report Type: 
  Country: None (occurrence: None)
  Receive Date: 20070110
  Receipt Date: 20060113
  Transmission Date: 20070707
  Serious: No
  Sender: FDA-Public Use
  Company Number: US-BRISTOL-MYERS SQUIBB COMPANY-13247135

PATIENT
  Age: 48 Year
  Sex: Female
  Weight: 66 kg

DRUGS (5)
  1. ABILIFY [Suspect]
     Indication: BIPOLAR DISORDER
     Route: 048
  2. ABILIFY [Suspect]
     Indication: MENTAL DISORDER
     Route: 048
  3. TOPAMAX [Concomitant]
     Indication: BIPOLAR DISORDER
  4. TOPAMAX [Concomitant]
     Indication: MENTAL DISORDER
  5. SUDAFED 12 HOUR [Concomitant]
     Indication: NASOPHARYNGITIS

REACTIONS (1)
  - DRUG SCREEN POSITIVE [None]
